FAERS Safety Report 17829930 (Version 5)
Quarter: 2020Q3

REPORT INFORMATION
  Report Type: Spontaneous
  Country: US (occurrence: US)
  Receive Date: 20200527
  Receipt Date: 20200731
  Transmission Date: 20201102
  Serious: Yes (Other)
  Sender: FDA-Public Use
  Company Number: US-UCBSA-2020003923

PATIENT
  Age: 55 Year
  Sex: Female

DRUGS (2)
  1. CIMZIA [Suspect]
     Active Substance: CERTOLIZUMAB PEGOL
     Dosage: 200 MILLIGRAM
     Route: 058
     Dates: start: 2020, end: 2020
  2. CIMZIA [Suspect]
     Active Substance: CERTOLIZUMAB PEGOL
     Indication: RHEUMATOID ARTHRITIS
     Dosage: 400 MILLIGRAM, OTHER
     Route: 058
     Dates: start: 202002, end: 2020

REACTIONS (9)
  - Swelling of eyelid [Unknown]
  - Dermatitis psoriasiform [Unknown]
  - Eyelid irritation [Unknown]
  - Dyspnoea [Unknown]
  - Oral mucosal blistering [Unknown]
  - Peripheral swelling [Unknown]
  - Off label use [Unknown]
  - Chest pain [Unknown]
  - Blood pressure abnormal [Unknown]

NARRATIVE: CASE EVENT DATE: 2020
